FAERS Safety Report 7914616-9 (Version None)
Quarter: 2011Q4

REPORT INFORMATION
  Report Type: 
  Country: None (occurrence: None)
  Receive Date: 20111115
  Receipt Date: 20111107
  Transmission Date: 20120403
  Serious: Yes (Other)
  Sender: FDA-Public Use
  Company Number: PHHY2011DE098367

PATIENT
  Sex: Male

DRUGS (3)
  1. CLOZAPINE [Suspect]
     Indication: SCHIZOPHRENIA
     Dosage: 225 MG, QD
     Route: 048
     Dates: start: 20110101
  2. METOPROLOL [Concomitant]
     Indication: TACHYCARDIA
     Dosage: UNK UKN, UNK
  3. HALOPERIDOL [Concomitant]
     Dosage: UNK UKN, UNK

REACTIONS (6)
  - CARDIAC FAILURE [None]
  - ELECTROCARDIOGRAM QT INTERVAL ABNORMAL [None]
  - TACHYCARDIA [None]
  - EXTRASYSTOLES [None]
  - EJECTION FRACTION DECREASED [None]
  - EOSINOPHILIA [None]
